FAERS Safety Report 18776899 (Version 3)
Quarter: 2021Q1

REPORT INFORMATION
  Report Type: Spontaneous
  Country: US (occurrence: US)
  Receive Date: 20210122
  Receipt Date: 20210209
  Transmission Date: 20210419
  Serious: No
  Sender: FDA-Public Use
  Company Number: NVSC2021US014740

PATIENT
  Sex: Female

DRUGS (1)
  1. NEOMYCIN AND POLYMYXIN B SULFATES AND DEXAMETHASONE [Suspect]
     Active Substance: DEXAMETHASONE\NEOMYCIN SULFATE\POLYMYXIN B SULFATE
     Indication: PRODUCT USED FOR UNKNOWN INDICATION
     Dosage: 3.5 MG(10000U/0)
     Route: 065

REACTIONS (5)
  - Eyelid margin crusting [Unknown]
  - Dry eye [Unknown]
  - Skin burning sensation [Unknown]
  - Swelling face [Unknown]
  - Vision blurred [Unknown]
